FAERS Safety Report 20534762 (Version 1)
Quarter: 2022Q1

REPORT INFORMATION
  Report Type: Spontaneous
  Country: IN (occurrence: IN)
  Receive Date: 20220302
  Receipt Date: 20220302
  Transmission Date: 20220423
  Serious: Yes (Death, Hospitalization, Other)
  Sender: FDA-Public Use
  Company Number: IN-RISINGPHARMA-IN-2022RISLIT00184

PATIENT
  Age: 27 Year
  Sex: Female

DRUGS (1)
  1. AZATHIOPRINE [Suspect]
     Active Substance: AZATHIOPRINE
     Indication: Colitis ulcerative
     Dosage: 100 MG (2 MG/KG/DAY)
     Route: 065

REACTIONS (15)
  - Decreased appetite [Fatal]
  - Fatigue [Fatal]
  - Dyspnoea [Fatal]
  - Tachycardia [Fatal]
  - Tachypnoea [Fatal]
  - Haemoglobin decreased [Fatal]
  - Febrile neutropenia [Fatal]
  - Hypotension [Fatal]
  - Myelosuppression [Fatal]
  - Respiratory failure [Fatal]
  - Toxicity to various agents [Fatal]
  - Pyrexia [Fatal]
  - Pancytopenia [Fatal]
  - Neutropenia [Fatal]
  - Alopecia [Unknown]
